FAERS Safety Report 24548919 (Version 1)
Quarter: 2024Q4

REPORT INFORMATION
  Report Type: Spontaneous
  Country: FR (occurrence: FR)
  Receive Date: 20241025
  Receipt Date: 20241025
  Transmission Date: 20250115
  Serious: Yes (Hospitalization)
  Sender: RANBAXY
  Company Number: FR-AFSSAPS-PO2024000428

PATIENT
  Age: 75 Year
  Sex: Male

DRUGS (3)
  1. ACETAMINOPHEN [Suspect]
     Active Substance: ACETAMINOPHEN
     Indication: Groin pain
     Dosage: UNK
     Route: 048
     Dates: start: 20240418, end: 20240418
  2. OFLOXACIN [Suspect]
     Active Substance: OFLOXACIN
     Indication: Groin pain
     Dosage: UNK
     Route: 048
     Dates: start: 20240415, end: 20240415
  3. PHLOROGLUCINOL [Suspect]
     Active Substance: PHLOROGLUCINOL
     Indication: Groin pain
     Dosage: UNK
     Route: 048
     Dates: start: 20240418, end: 20240418

REACTIONS (1)
  - Anaphylactic shock [Recovered/Resolved]

NARRATIVE: CASE EVENT DATE: 20240418
